FAERS Safety Report 6223807-7 (Version None)
Quarter: 2009Q2

REPORT INFORMATION
  Report Type: 
  Country: None (occurrence: None)
  Receive Date: 20090611
  Receipt Date: 20090303
  Transmission Date: 20091009
  Serious: No
  Sender: FDA-Public Use
  Company Number: US-ABBOTT-09P-163-0559624-00

PATIENT
  Sex: Female
  Weight: 78.088 kg

DRUGS (10)
  1. HUMIRA [Suspect]
     Indication: CROHN'S DISEASE
     Route: 058
     Dates: end: 20081001
  2. HUMIRA [Suspect]
     Indication: RHEUMATOID ARTHRITIS
  3. CALCIUM + VITAMIN D [Concomitant]
     Indication: DRUG USE FOR UNKNOWN INDICATION
  4. CLONIDINE [Concomitant]
     Indication: HYPERTENSION
     Dosage: FORM STRENGTH: 0.2 MG
  5. ENALAPRIL [Concomitant]
     Indication: HYPERTENSION
     Dosage: FORM STRENGTH: 20 MG
  6. GABAPENTIN [Concomitant]
     Indication: NEURALGIA
  7. MESALAMINE [Concomitant]
     Indication: CROHN'S DISEASE
  8. PREDNISONE [Concomitant]
     Indication: CROHN'S DISEASE
  9. TRAZODONE HCL [Concomitant]
     Indication: INSOMNIA
  10. MORPHINE [Concomitant]
     Indication: PAIN

REACTIONS (2)
  - NASOPHARYNGITIS [None]
  - OSTEOMYELITIS [None]
